FAERS Safety Report 5587143-4 (Version None)
Quarter: 2008Q1

REPORT INFORMATION
  Report Type: 
  Country: None (occurrence: None)
  Receive Date: 20080110
  Receipt Date: 20080104
  Transmission Date: 20080703
  Serious: Yes (Other)
  Sender: FDA-Public Use
  Company Number: US-ASTRAZENECA-2008UW00343

PATIENT
  Age: 59 Year
  Sex: Female
  Weight: 53.5 kg

DRUGS (4)
  1. FASLODEX [Suspect]
     Indication: BREAST CANCER
     Route: 030
  2. FASLODEX [Suspect]
     Indication: BONE LESION
     Route: 030
  3. SYNTHROID [Concomitant]
  4. ZOMETA [Concomitant]

REACTIONS (7)
  - ALOPECIA [None]
  - ANOREXIA [None]
  - CHEST DISCOMFORT [None]
  - DEPRESSION [None]
  - FATIGUE [None]
  - MOOD ALTERED [None]
  - MUSCLE TIGHTNESS [None]
